FAERS Safety Report 11500711 (Version 1)
Quarter: 2015Q3

REPORT INFORMATION
  Report Type: Spontaneous
  Country: US (occurrence: None)
  Receive Date: 20150911
  Receipt Date: 20150911
  Transmission Date: 20151125
  Serious: Yes (Hospitalization)
  Sender: FDA-Public Use
  Company Number: None

PATIENT
  Age: 3 Year
  Sex: Female
  Weight: 18 kg

DRUGS (1)
  1. OMEGAVEN [Suspect]
     Active Substance: FISH OIL
     Indication: PARENTERAL NUTRITION ASSOCIATED LIVER DISEASE
     Dosage: 1 G/KG/DAY OVER 12 HR
     Dates: start: 2013

REACTIONS (1)
  - Upper airway obstruction [None]

NARRATIVE: CASE EVENT DATE: 20150804
